FAERS Safety Report 5884258-8 (Version None)
Quarter: 2008Q3

REPORT INFORMATION
  Report Type: 
  Country: None (occurrence: None)
  Receive Date: 20080911
  Receipt Date: 20080829
  Transmission Date: 20090109
  Serious: Yes (Other)
  Sender: FDA-Public Use
  Company Number: 230015M08SWE

PATIENT
  Age: 60 Year
  Sex: Female

DRUGS (4)
  1. REBIF [Suspect]
     Indication: MULTIPLE SCLEROSIS
     Dosage: 22 MCG, 3 IN 1 WEEKS, SUBCUTANEOUS
     Route: 058
     Dates: start: 19980101, end: 20070101
  2. ISOPHANE INSULIN [Concomitant]
  3. SIMVASTATIN [Concomitant]
  4. LEKOVIT CA [Concomitant]

REACTIONS (1)
  - LUNG ADENOCARCINOMA [None]
